FAERS Safety Report 16332987 (Version 6)
Quarter: 2019Q3

REPORT INFORMATION
  Report Type: Spontaneous
  Country: US (occurrence: US)
  Receive Date: 20190520
  Receipt Date: 20190801
  Transmission Date: 20191004
  Serious: Yes (Death, Hospitalization)
  Sender: FDA-Public Use
  Company Number: US-VIFOR (INTERNATIONAL) INC.-VIT-2019-04715

PATIENT
  Age: 73 Year
  Sex: Male
  Weight: 145.73 kg

DRUGS (19)
  1. ACTIVE Q [Concomitant]
  2. DOXAZOSIN [Concomitant]
     Active Substance: DOXAZOSIN MESYLATE
     Dosage: 1/2 TABLET TWICE DAY
     Route: 048
  3. PRAVASTATIN. [Concomitant]
     Active Substance: PRAVASTATIN
     Route: 048
  4. VELTASSA [Suspect]
     Active Substance: PATIROMER
     Indication: HYPERKALAEMIA
     Route: 048
     Dates: start: 20180405
  5. LIDOCAINE. [Concomitant]
     Active Substance: LIDOCAINE
  6. TORSEMIDE. [Concomitant]
     Active Substance: TORSEMIDE
     Route: 048
  7. LEVOTHYROXINE. [Concomitant]
     Active Substance: LEVOTHYROXINE
     Route: 048
  8. TAMSULOSIN [Concomitant]
     Active Substance: TAMSULOSIN
     Route: 048
  9. ALLOPURINOL. [Concomitant]
     Active Substance: ALLOPURINOL
     Route: 048
  10. ASPIRIN. [Concomitant]
     Active Substance: ASPIRIN
     Route: 048
  11. NIFEDIPINE. [Concomitant]
     Active Substance: NIFEDIPINE
     Route: 048
  12. LANTUS SOLOSTAR U-100 INSULIN [Concomitant]
  13. VELTASSA [Suspect]
     Active Substance: PATIROMER
     Route: 048
     Dates: start: 20180613
  14. FISH OIL CONCENTRATE [Concomitant]
     Active Substance: FISH OIL
     Route: 048
  15. GLIPIZIDE. [Concomitant]
     Active Substance: GLIPIZIDE
     Route: 048
  16. CARVEDILOL. [Concomitant]
     Active Substance: CARVEDILOL
     Route: 048
  17. TRIAMCINOLONE ACETONIDE. [Concomitant]
     Active Substance: TRIAMCINOLONE ACETONIDE
     Indication: DERMATITIS
  18. TYLENOL [Concomitant]
     Active Substance: ACETAMINOPHEN
     Route: 048
  19. VALIUM [Concomitant]
     Active Substance: DIAZEPAM

REACTIONS (3)
  - Death [Fatal]
  - Internal haemorrhage [Unknown]
  - Haemorrhoidal haemorrhage [Unknown]

NARRATIVE: CASE EVENT DATE: 20190513
